FAERS Safety Report 22623693 (Version 1)
Quarter: 2023Q2

REPORT INFORMATION
  Report Type: Spontaneous
  Country: GB (occurrence: GB)
  Receive Date: 20230621
  Receipt Date: 20230621
  Transmission Date: 20230722
  Serious: Yes (Other)
  Sender: FDA-Public Use
  Company Number: GB-MHRA-MIDB-f68748b7-56fd-4fff-af6b-4d94bab2473c

PATIENT
  Age: 64 Year

DRUGS (19)
  1. AMOXICILLIN\CLAVULANATE POTASSIUM [Suspect]
     Active Substance: AMOXICILLIN\CLAVULANATE POTASSIUM
     Indication: Product used for unknown indication
     Dosage: 1 DOSAGE FORM, 3 TIMES A DAY (500MG/125MG THREE TIMES A DAY)
     Route: 048
  2. AMOXICILLIN\CLAVULANATE POTASSIUM [Suspect]
     Active Substance: AMOXICILLIN\CLAVULANATE POTASSIUM
     Dosage: 1 DOSAGE FORM, ONCE A DAY (80MG/400MG. ONCE DAILY
     Route: 048
  3. METHYLPREDNISOLONE SODIUM SUCCINATE [Suspect]
     Active Substance: METHYLPREDNISOLONE SODIUM SUCCINATE
     Indication: Product used for unknown indication
     Dosage: 125 MILLIGRAM
     Route: 065
  4. ACETAMINOPHEN [Suspect]
     Active Substance: ACETAMINOPHEN
     Indication: Product used for unknown indication
     Dosage: UNK UNK, AS NECESSARY
     Route: 048
  5. PREDNISOLONE [Suspect]
     Active Substance: PREDNISOLONE
     Indication: Product used for unknown indication
     Dosage: 60 MILLIGRAM, ONCE A DAY (MORNING)
     Route: 048
     Dates: start: 20230420
  6. PIPERACILLIN SODIUM\TAZOBACTAM SODIUM [Suspect]
     Active Substance: PIPERACILLIN SODIUM\TAZOBACTAM SODIUM
     Indication: Product used for unknown indication
     Dosage: 4.5 GRAM, TWO TIMES A DAY
     Route: 065
     Dates: start: 20230415
  7. CALCIUM CARBONATE\CHOLECALCIFEROL [Concomitant]
     Active Substance: CALCIUM CARBONATE\CHOLECALCIFEROL
     Indication: Product used for unknown indication
     Dosage: 2 DOSAGE FORM, ONCE A DAY (MORNING)
     Route: 048
     Dates: start: 20230416
  8. CALCIUM CARBONATE [Concomitant]
     Active Substance: CALCIUM CARBONATE
     Indication: Product used for unknown indication
     Dosage: 1.25 GRAM, 3 TIMES A DAY
     Route: 048
  9. CHOLECALCIFEROL [Concomitant]
     Active Substance: CHOLECALCIFEROL
     Indication: Product used for unknown indication
     Dosage: 40000 INTERNATIONAL UNIT, EVERY WEEK
     Route: 048
     Dates: start: 20230417
  10. DESMOPRESSIN [Concomitant]
     Active Substance: DESMOPRESSIN
     Indication: Product used for unknown indication
     Dosage: 20 MICROGRAM, ONCE A DAY
     Route: 065
     Dates: start: 20230420
  11. ENOXAPARIN [Concomitant]
     Active Substance: ENOXAPARIN
     Indication: Product used for unknown indication
     Dosage: 20 MILLIGRAM, ONCE A DAY
     Route: 065
     Dates: start: 20230415
  12. LATANOPROST [Concomitant]
     Active Substance: LATANOPROST
     Indication: Product used for unknown indication
     Dosage: 1 GTT DROPS, ONCE A DAY (50MCG/ML. BOTH EYES AT NIGHT)
     Route: 065
  13. POLYETHYLENE GLYCOLS [Concomitant]
     Active Substance: POLYETHYLENE GLYCOLS
     Indication: Product used for unknown indication
     Dosage: 2 DOSAGE FORM, ONCE A DAY
     Route: 065
  14. MAGNESIUM ASPARTATE DIHYDRATE [Concomitant]
     Active Substance: MAGNESIUM ASPARTATE DIHYDRATE
     Indication: Product used for unknown indication
     Dosage: 10 MILLIMOLE, ONCE A DAY (MORNING)
     Route: 065
  15. METHYLPREDNISOLONE [Concomitant]
     Active Substance: METHYLPREDNISOLONE
     Indication: Product used for unknown indication
     Dosage: 250 MILLIGRAM, ONCE A DAY (MORNING)
     Route: 065
     Dates: start: 20230418
  16. METOCLOPRAMIDE [Concomitant]
     Active Substance: METOCLOPRAMIDE
     Indication: Product used for unknown indication
     Dosage: 10 MILLIGRAM, 3 TIMES A DAY
     Route: 065
  17. MOMETASONE [Concomitant]
     Active Substance: MOMETASONE
     Indication: Product used for unknown indication
     Dosage: 4 DOSAGE FORM, ONCE A DAY (950MCG/DOSE. INTO BOTH NOSTRILS)
     Route: 065
  18. PREDNISOLONE [Concomitant]
     Active Substance: PREDNISOLONE
     Indication: Product used for unknown indication
     Dosage: 250 MILLIGRAM, ONCE A DAY (ONE DOSE GIVEN THAT DAY ?? - V HIGH DOSE?)
     Route: 048
     Dates: start: 20230416
  19. SILDENAFIL [Concomitant]
     Active Substance: SILDENAFIL
     Indication: Product used for unknown indication
     Dosage: 50 MILLIGRAM, AS NECESSARY
     Route: 048

REACTIONS (2)
  - Liver function test abnormal [Recovered/Resolved]
  - Alanine aminotransferase increased [Unknown]

NARRATIVE: CASE EVENT DATE: 20230520
